FAERS Safety Report 8258733-5 (Version None)
Quarter: 2012Q2

REPORT INFORMATION
  Report Type: 
  Country: None (occurrence: None)
  Receive Date: 20120404
  Receipt Date: 20120404
  Transmission Date: 20120825
  Serious: Yes (Hospitalization)
  Sender: FDA-Public Use
  Company Number: None

PATIENT
  Sex: Male
  Weight: 78.1 kg

DRUGS (6)
  1. CELEBREX [Concomitant]
     Indication: THROMBOSIS PROPHYLAXIS
  2. PRILOSEC [Concomitant]
  3. CALCIUM CARBONATE [Concomitant]
  4. PERCOCET [Concomitant]
  5. RIVAROXABAN [Suspect]
     Indication: KNEE ARTHROPLASTY
     Dosage: 10 MG
     Route: 048
     Dates: start: 20120303, end: 20120310
  6. MULTI-VITAMIN [Concomitant]

REACTIONS (2)
  - RECTAL HAEMORRHAGE [None]
  - HAEMOGLOBIN DECREASED [None]
